FAERS Safety Report 16778446 (Version 1)
Quarter: 2019Q3

REPORT INFORMATION
  Report Type: Spontaneous
  Country: IT (occurrence: IT)
  Receive Date: 20190906
  Receipt Date: 20190906
  Transmission Date: 20191005
  Serious: Yes (Hospitalization)
  Sender: FDA-Public Use
  Company Number: PHHY2019IT201681

PATIENT
  Age: 8 Year
  Sex: Male
  Weight: 18 kg

DRUGS (1)
  1. EXJADE [Suspect]
     Active Substance: DEFERASIROX
     Indication: HAEMOCHROMATOSIS
     Dosage: 23 MG/KG, QD
     Route: 048
     Dates: start: 20141030, end: 20190712

REACTIONS (5)
  - Somnolence [Recovered/Resolved]
  - Extensor plantar response [Recovered/Resolved]
  - Hyperpyrexia [Recovered/Resolved]
  - Pyrexia [Recovered/Resolved]
  - Meningism [Recovered/Resolved]

NARRATIVE: CASE EVENT DATE: 20190708
